FAERS Safety Report 13590482 (Version 1)
Quarter: 2017Q2

REPORT INFORMATION
  Report Type: Spontaneous
  Country: US (occurrence: US)
  Receive Date: 20170529
  Receipt Date: 20170529
  Transmission Date: 20170830
  Serious: Yes (Disabling)
  Sender: FDA-Public Use
  Company Number: None

PATIENT
  Age: 44 Year
  Sex: Female
  Weight: 101.2 kg

DRUGS (14)
  1. FLUDROCORTISONE [Concomitant]
     Active Substance: FLUDROCORTISONE
  2. SERTRALINE [Concomitant]
     Active Substance: SERTRALINE HYDROCHLORIDE
  3. MULTI [Concomitant]
  4. ECHINACEA [Concomitant]
     Active Substance: ECHINACEA, UNSPECIFIED
  5. LEVOFLOXACIN. [Suspect]
     Active Substance: LEVOFLOXACIN
     Indication: SINUSITIS
     Dates: start: 20070123, end: 20160425
  6. TOPROL XL [Concomitant]
     Active Substance: METOPROLOL SUCCINATE
  7. VITAMIN D [Concomitant]
     Active Substance: CHOLECALCIFEROL
  8. ASPIRIN. [Concomitant]
     Active Substance: ASPIRIN
  9. CIPRO HC [Suspect]
     Active Substance: CIPROFLOXACIN HYDROCHLORIDE\HYDROCORTISONE
     Indication: SINUSITIS
     Dates: start: 20100521, end: 20100528
  10. VITAMIN C [Concomitant]
     Active Substance: ASCORBIC ACID
  11. DIGOXIN. [Concomitant]
     Active Substance: DIGOXIN
  12. MANESIUM OXIDE [Concomitant]
  13. BUSPAR [Concomitant]
     Active Substance: BUSPIRONE HYDROCHLORIDE
  14. TYLENOL [Concomitant]
     Active Substance: ACETAMINOPHEN

REACTIONS (16)
  - Cardiac disorder [None]
  - Asthenia [None]
  - Fall [None]
  - Muscle injury [None]
  - Neuropathy peripheral [None]
  - Epicondylitis [None]
  - Platelet disorder [None]
  - Pain [None]
  - Tendon rupture [None]
  - Anaemia [None]
  - Movement disorder [None]
  - Back disorder [None]
  - Dysstasia [None]
  - Arthropathy [None]
  - Rotator cuff syndrome [None]
  - Peripheral coldness [None]
